FAERS Safety Report 16946230 (Version 2)
Quarter: 2019Q4

REPORT INFORMATION
  Report Type: Spontaneous
  Country: US (occurrence: US)
  Receive Date: 20191022
  Receipt Date: 20191126
  Transmission Date: 20200122
  Serious: No
  Sender: FDA-Public Use
  Company Number: US-SA-2019SA290959

PATIENT
  Age: 26 Year
  Sex: Female

DRUGS (1)
  1. DUPIXENT [Suspect]
     Active Substance: DUPILUMAB
     Indication: DERMATITIS ATOPIC
     Dosage: 300 MG, OTHER
     Route: 058
     Dates: start: 20190924

REACTIONS (7)
  - Skin mass [Unknown]
  - Pruritus [Not Recovered/Not Resolved]
  - Mass [Unknown]
  - Condition aggravated [Unknown]
  - Therapeutic response decreased [Not Recovered/Not Resolved]
  - Alopecia [Unknown]
  - Dandruff [Unknown]

NARRATIVE: CASE EVENT DATE: 2019
